FAERS Safety Report 14713287 (Version 3)
Quarter: 2018Q2

REPORT INFORMATION
  Report Type: Report from Study
  Country: IN (occurrence: IN)
  Receive Date: 20180404
  Receipt Date: 20180420
  Transmission Date: 20180711
  Serious: Yes (Death)
  Sender: FDA-Public Use
  Company Number: IN-ROCHE-2101786

PATIENT

DRUGS (1)
  1. TENECTEPLASE [Suspect]
     Active Substance: TENECTEPLASE
     Indication: ISCHAEMIC STROKE
     Dosage: SINGLE BOLUS IV INJECTION AT THE DOSE AND TOTAL DOSE NOT EXCEEDING 20 MG
     Route: 040

REACTIONS (2)
  - Haemorrhage intracranial [Fatal]
  - Pneumonia aspiration [Fatal]
